FAERS Safety Report 22113039 (Version 3)
Quarter: 2023Q2

REPORT INFORMATION
  Report Type: Spontaneous
  Country: AR (occurrence: AR)
  Receive Date: 20230320
  Receipt Date: 20230607
  Transmission Date: 20230722
  Serious: Yes (Other)
  Sender: FDA-Public Use
  Company Number: AR-AUROBINDO-AUR-APL-2023-012395

PATIENT
  Age: 59 Year
  Sex: Male

DRUGS (1)
  1. BELEODAQ [Suspect]
     Active Substance: BELINOSTAT
     Indication: Product used for unknown indication
     Dosage: 1000 MILLIGRAM/SQ. METER
     Route: 042
     Dates: start: 20230301

REACTIONS (4)
  - Cellulitis [Recovering/Resolving]
  - Erysipelas [Unknown]
  - Hypersensitivity [Unknown]
  - Vessel puncture site phlebitis [Unknown]

NARRATIVE: CASE EVENT DATE: 20230302
